FAERS Safety Report 6060155-2 (Version None)
Quarter: 2009Q1

REPORT INFORMATION
  Report Type: 
  Country: None (occurrence: None)
  Receive Date: 20090128
  Receipt Date: 20090119
  Transmission Date: 20090719
  Serious: Yes (Hospitalization)
  Sender: FDA-Public Use
  Company Number: 2009GR_BP0096

PATIENT
  Age: 27 Year
  Sex: Female

DRUGS (2)
  1. LEVONORGESTREL [Suspect]
     Indication: ORAL CONTRACEPTION
     Dosage: THE TABLETS WERE TAKEN 2 HOURS AND 14 HOURS AFTER SEXUAL RELATIONS (0.75 MG, 1Q12HR), ORAL
     Route: 048
     Dates: start: 20080614, end: 20080614
  2. AVONEX [Concomitant]

REACTIONS (7)
  - ABORTION INDUCED [None]
  - ANTEPARTUM HAEMORRHAGE [None]
  - DRUG EXPOSURE DURING PREGNANCY [None]
  - DRUG INEFFECTIVE [None]
  - PAIN [None]
  - PREGNANCY AFTER POST COITAL CONTRACEPTION [None]
  - TWIN PREGNANCY [None]
